FAERS Safety Report 9392737 (Version 1)
Quarter: 2013Q3

REPORT INFORMATION
  Report Type: Spontaneous
  Country: GB (occurrence: GB)
  Receive Date: 20130710
  Receipt Date: 20130710
  Transmission Date: 20140515
  Serious: Yes (Other)
  Sender: FDA-Public Use
  Company Number: GB-JNJFOC-20130203982

PATIENT
  Sex: Female

DRUGS (2)
  1. REMICADE [Suspect]
     Indication: EYE DISORDER
     Dosage: 300 MG DOSE AND FREQUENCY (2/12)
     Route: 042
     Dates: start: 2011, end: 2012
  2. REMICADE [Suspect]
     Indication: EYE DISORDER
     Dosage: 300 MG DOSE AND FREQUENCY (2/12)
     Route: 042
     Dates: start: 201303

REACTIONS (2)
  - Condition aggravated [Unknown]
  - Off label use [Unknown]
